FAERS Safety Report 10600265 (Version 2)
Quarter: 2015Q1

REPORT INFORMATION
  Report Type: Spontaneous
  Country: FR (occurrence: FR)
  Receive Date: 20141123
  Receipt Date: 20150310
  Transmission Date: 20150720
  Serious: Yes (Other)
  Sender: FDA-Public Use
  Company Number: FR-009507513-1411FRA007761

PATIENT
  Age: 83 Year
  Sex: Male
  Weight: 54 kg

DRUGS (16)
  1. ACETAMINOPHEN. [Concomitant]
     Active Substance: ACETAMINOPHEN
     Indication: PYREXIA
     Dosage: 2 DF, Q8H, DAILY DOSE OF  3 G
     Route: 048
  2. CALCIPARINE [Concomitant]
     Active Substance: HEPARIN CALCIUM
     Dosage: 0.3 ML, Q8H
     Route: 058
  3. LASILIX [Concomitant]
     Active Substance: FUROSEMIDE
     Dosage: 1.5 DF, QD
     Route: 048
     Dates: end: 20141105
  4. ACETAMINOPHEN. [Concomitant]
     Active Substance: ACETAMINOPHEN
     Indication: PAIN
  5. DIFFU-K [Concomitant]
     Active Substance: POTASSIUM CHLORIDE
     Dosage: UNK UNK, TID
     Route: 048
     Dates: start: 20141101
  6. TIENAM 500MG, POUDRE ET SOLUTION POUR USAGE PARENTERAL (IM) [Suspect]
     Active Substance: CILASTATIN SODIUM\IMIPENEM
     Indication: SEPSIS
     Dosage: 500 MG, QID
     Route: 042
     Dates: start: 20141009, end: 20141105
  7. XALATAN [Concomitant]
     Active Substance: LATANOPROST
     Dosage: 1 GTT, QD
  8. PHOCYTAN [Concomitant]
     Active Substance: .ALPHA.-GLUCOSE-1-PHOSPHATE
     Dosage: 1 DF, QD (1 AMPOULE)
     Route: 042
     Dates: start: 20141030, end: 20141105
  9. SODIUM CHLORIDE. [Concomitant]
     Active Substance: SODIUM CHLORIDE
     Dosage: UNK
     Dates: start: 20141022, end: 20141030
  10. EXELON [Concomitant]
     Active Substance: RIVASTIGMINE TARTRATE
     Dosage: 1 DF, 1 PATCH QD
     Route: 003
  11. XATRAL [Concomitant]
     Active Substance: ALFUZOSIN
     Dosage: 1 DF, QD
     Route: 048
  12. DEXTROSE. [Concomitant]
     Active Substance: DEXTROSE
     Dosage: UNK
     Route: 042
     Dates: start: 20141022
  13. ALPRAZOLAM MYLAN [Concomitant]
     Active Substance: ALPRAZOLAM
     Indication: AGITATION
     Dosage: 0.5 MG, TID
     Route: 048
  14. TIENAM 500MG, POUDRE ET SOLUTION POUR USAGE PARENTERAL (IM) [Suspect]
     Active Substance: CILASTATIN SODIUM\IMIPENEM
     Dosage: AT LOWER DOSES
     Route: 042
  15. MIANSERIN HYDROCHLORIDE [Suspect]
     Active Substance: MIANSERIN HYDROCHLORIDE
     Indication: DEPRESSION
     Dosage: 1 DF, QD
     Route: 048
     Dates: start: 20141023
  16. FOSFOCINA [Concomitant]
     Active Substance: FOSFOMYCIN SODIUM
     Indication: PATHOGEN RESISTANCE
     Dosage: 3 G, TID
     Dates: start: 20141028

REACTIONS (2)
  - Epilepsy [Recovered/Resolved]
  - Seizure [Recovered/Resolved]

NARRATIVE: CASE EVENT DATE: 20141103
